FAERS Safety Report 8811518 (Version 2)
Quarter: 2015Q2

REPORT INFORMATION
  Report Type: Spontaneous
  Country: CA (occurrence: CA)
  Receive Date: 20120927
  Receipt Date: 20150406
  Transmission Date: 20150821
  Serious: Yes (Other)
  Sender: FDA-Public Use
  Company Number: CA-RANBAXY-2012US-60403

PATIENT
  Age: 4 Day

DRUGS (1)
  1. PARACETAMOL+CODEINE [Suspect]
     Active Substance: ACETAMINOPHEN\CODEINE PHOSPHATE
     Indication: AFTERBIRTH PAIN
     Dosage: UNK
     Route: 063

REACTIONS (3)
  - Somnolence [Recovering/Resolving]
  - Exposure during breast feeding [Recovering/Resolving]
  - Depressed level of consciousness [Recovering/Resolving]
